FAERS Safety Report 18587811 (Version 3)
Quarter: 2025Q4

REPORT INFORMATION
  Report Type: Spontaneous
  Country: EU (occurrence: EU)
  Receive Date: 20201207
  Receipt Date: 20251102
  Transmission Date: 20260118
  Serious: Yes (Hospitalization, Other)
  Sender: BOEHRINGER INGELHEIM
  Company Number: EU-TEVA-2020-SE-1182936

PATIENT
  Age: 56 Year
  Sex: Female

DRUGS (8)
  1. NINTEDANIB [Suspect]
     Active Substance: NINTEDANIB
     Indication: Bronchial carcinoma
  2. NINTEDANIB [Suspect]
     Active Substance: NINTEDANIB
     Dosage: 400 MG, QD; WAS TREATED FOR 20 DAYS
  3. NINTEDANIB [Suspect]
     Active Substance: NINTEDANIB
     Dosage: 400 MILLIGRAM DAILY; WAS TREATED FOR 20 DAYS
  4. DOCETAXEL [Suspect]
     Active Substance: DOCETAXEL
     Indication: Bronchial carcinoma
  5. ZOLEDRONIC ACID [Concomitant]
     Active Substance: ZOLEDRONIC ACID
     Indication: Product used for unknown indication
     Dosage: UNK
  6. ZOLEDRONIC ACID [Concomitant]
     Active Substance: ZOLEDRONIC ACID
     Indication: Product used for unknown indication
  7. LEVOTHYROXINE [Concomitant]
     Active Substance: LEVOTHYROXINE
     Indication: Product used for unknown indication
     Dosage: UNK
  8. LEVOTHYROXINE [Concomitant]
     Active Substance: LEVOTHYROXINE
     Indication: Product used for unknown indication

REACTIONS (3)
  - Intestinal ischaemia [Unknown]
  - Gastrointestinal necrosis [Unknown]
  - Intestinal haemorrhage [Unknown]
